FAERS Safety Report 15227925 (Version 1)
Quarter: 2018Q3

REPORT INFORMATION
  Report Type: Spontaneous
  Country: US (occurrence: US)
  Receive Date: 20180727
  Receipt Date: 20180727
  Transmission Date: 20181010
  Serious: Yes (Hospitalization)
  Sender: FDA-Public Use
  Company Number: None

PATIENT
  Age: 54 Year
  Sex: Male
  Weight: 80.7 kg

DRUGS (1)
  1. CANNABIS [Suspect]
     Active Substance: CANNABIS SATIVA SUBSP. INDICA TOP
     Indication: SUBSTANCE USE
     Dates: start: 20180710, end: 20180711

REACTIONS (8)
  - Haematuria [None]
  - Thrombosis [None]
  - International normalised ratio increased [None]
  - Haemophilia [None]
  - Haemoglobin decreased [None]
  - Poisoning [None]
  - Product tampering [None]
  - Infusion related reaction [None]

NARRATIVE: CASE EVENT DATE: 20180716
